FAERS Safety Report 6917643-3 (Version None)
Quarter: 2010Q3

REPORT INFORMATION
  Report Type: 
  Country: None (occurrence: None)
  Receive Date: 20100810
  Receipt Date: 20100727
  Transmission Date: 20110219
  Serious: Yes (Hospitalization)
  Sender: FDA-Public Use
  Company Number: GB-MYLANLABS-2010S1013450

PATIENT
  Age: 62 Year
  Sex: Female

DRUGS (5)
  1. METHOTREXATE [Suspect]
     Indication: CENTRAL NERVOUS SYSTEM LYMPHOMA
     Dosage: DOSAGE AND ROUTE NOT STATED
  2. CYTARABINE [Suspect]
     Indication: CENTRAL NERVOUS SYSTEM LYMPHOMA
     Dosage: DOSAGE AND ROUTE NOT STATED
  3. DOXYCYCLINE [Suspect]
     Indication: SEPSIS
     Dosage: DOSAGE AND ROUTE NOT STATED
  4. FUSIDIC ACID [Concomitant]
     Indication: SEPSIS
     Dosage: DOSAGE AND ROUTE NOT STATED
  5. VANCOMYCIN [Concomitant]
     Indication: SEPSIS
     Dosage: DOSAGE AND ROUTE NOT STATED

REACTIONS (3)
  - VOMITING [None]
  - WERNICKE'S ENCEPHALOPATHY [None]
  - WERNICKE-KORSAKOFF SYNDROME [None]
